FAERS Safety Report 24242290 (Version 1)
Quarter: 2024Q3

REPORT INFORMATION
  Report Type: Other
  Country: CA (occurrence: CA)
  Receive Date: 20240823
  Receipt Date: 20240823
  Transmission Date: 20241016
  Serious: Yes (Hospitalization, Other)
  Sender: PFIZER
  Company Number: CA-PFIZER INC-202400241120

PATIENT
  Age: 14 Year
  Sex: Male

DRUGS (6)
  1. METHOTREXATE SODIUM [Suspect]
     Active Substance: METHOTREXATE SODIUM
     Indication: Prophylaxis against graft versus host disease
     Route: 065
  2. CYCLOPHOSPHAMIDE [Concomitant]
     Active Substance: CYCLOPHOSPHAMIDE
  3. CYCLOSPORINE [Concomitant]
     Active Substance: CYCLOSPORINE
  4. FLUDARABINE [Concomitant]
     Active Substance: FLUDARABINE PHOSPHATE
  5. LAPINE T-LYMPHOCYTE IMMUNE GLOBULIN [Concomitant]
     Active Substance: LAPINE T-LYMPHOCYTE IMMUNE GLOBULIN
  6. TENOFOVIR DISOPROXIL FUMARATE [Concomitant]
     Active Substance: TENOFOVIR DISOPROXIL FUMARATE

REACTIONS (13)
  - Agranulocytosis [Unknown]
  - Alanine aminotransferase decreased [Unknown]
  - Anaemia [Unknown]
  - Aspartate aminotransferase decreased [Unknown]
  - Blood alkaline phosphatase decreased [Unknown]
  - C-reactive protein increased [Unknown]
  - Hepatitis B core antibody [Unknown]
  - Hepatitis B surface antibody [Unknown]
  - Hyperbilirubinaemia [Unknown]
  - Off label use [Unknown]
  - Procalcitonin [Unknown]
  - Product use issue [Unknown]
  - Staphylococcal sepsis [Unknown]
